FAERS Safety Report 19791035 (Version 1)
Quarter: 2021Q3

REPORT INFORMATION
  Report Type: Spontaneous
  Country: JP (occurrence: JP)
  Receive Date: 20210906
  Receipt Date: 20210906
  Transmission Date: 20211014
  Serious: Yes (Hospitalization, Other)
  Sender: FDA-Public Use
  Company Number: JP-TEVA-2021-JP-1950110

PATIENT
  Age: 26 Year
  Sex: Female

DRUGS (3)
  1. METHYLPREDNISOLONE. [Suspect]
     Active Substance: METHYLPREDNISOLONE
     Indication: ACUTE HEPATIC FAILURE
     Route: 065
  2. PREDNISOLONE. [Suspect]
     Active Substance: PREDNISOLONE
     Indication: STILL^S DISEASE
  3. PREDNISOLONE. [Suspect]
     Active Substance: PREDNISOLONE
     Indication: THYROIDITIS SUBACUTE
     Dosage: 20 MILLIGRAM DAILY;
     Route: 065

REACTIONS (7)
  - Still^s disease [Unknown]
  - Acute hepatic failure [Unknown]
  - Ascites [Unknown]
  - Drug ineffective [Unknown]
  - Rebound effect [Unknown]
  - Encephalopathy [Unknown]
  - Haemophagocytic lymphohistiocytosis [Unknown]
